FAERS Safety Report 10330777 (Version 2)
Quarter: 2014Q4

REPORT INFORMATION
  Report Type: Spontaneous
  Country: DE (occurrence: None)
  Receive Date: 20140718
  Receipt Date: 20141017
  Transmission Date: 20150528
  Serious: Yes (Death, Hospitalization, Other)
  Sender: FDA-Public Use
  Company Number: ADR-2014-01245

PATIENT
  Age: 74 Year
  Sex: Male

DRUGS (4)
  1. SODIUM VALPROATE [Suspect]
     Active Substance: VALPROATE SODIUM
  2. LIORESAL [Suspect]
     Active Substance: BACLOFEN
     Indication: MUSCLE SPASTICITY
  3. BACLOFEN. [Suspect]
     Active Substance: BACLOFEN
     Indication: MUSCLE SPASTICITY
     Dosage: 10MG INFUSION/24H
  4. FENTANYL. [Suspect]
     Active Substance: FENTANYL
     Dosage: 25MCG/H PATCH

REACTIONS (10)
  - Anxiety [None]
  - Drug withdrawal syndrome [None]
  - Agitation [None]
  - Ileus [None]
  - Seizure [None]
  - Peritonitis [None]
  - Bruxism [None]
  - Pain [None]
  - Wound dehiscence [None]
  - Device dislocation [None]

NARRATIVE: CASE EVENT DATE: 20140510
